FAERS Safety Report 10798531 (Version 1)
Quarter: 2015Q1

REPORT INFORMATION
  Report Type: Spontaneous
  Country: US (occurrence: US)
  Receive Date: 20150216
  Receipt Date: 20150216
  Transmission Date: 20150721
  Serious: No
  Sender: FDA-Public Use
  Company Number: US-ASTRAZENECA-2014SE25544

PATIENT
  Age: 88 Year
  Sex: Female
  Weight: 52.2 kg

DRUGS (2)
  1. TOPROL XL [Suspect]
     Active Substance: METOPROLOL SUCCINATE
     Indication: BLOOD PRESSURE ABNORMAL
     Route: 048
  2. TOPROL XL [Suspect]
     Active Substance: METOPROLOL SUCCINATE
     Indication: BLOOD PRESSURE ABNORMAL
     Dosage: EVERY MORNING
     Route: 048

REACTIONS (6)
  - Body height decreased [Unknown]
  - Drug dose omission [Unknown]
  - Drug effect decreased [Unknown]
  - Abnormal dreams [Recovered/Resolved]
  - Adverse event [Unknown]
  - Dizziness [Unknown]
